FAERS Safety Report 7349655-2 (Version None)
Quarter: 2011Q1

REPORT INFORMATION
  Report Type: 
  Country: None (occurrence: None)
  Receive Date: 20110314
  Receipt Date: 20110215
  Transmission Date: 20110831
  Serious: No
  Sender: FDA-Public Use
  Company Number: A0914477A

PATIENT
  Age: 39 Year
  Sex: Male

DRUGS (8)
  1. FLEXERIL [Suspect]
     Dosage: 10MG THREE TIMES PER DAY
     Route: 048
     Dates: start: 20110127
  2. AUGMENTIN '125' [Suspect]
     Indication: LOCAL SWELLING
     Route: 048
     Dates: start: 20110127
  3. MULTI-VITAMIN [Concomitant]
  4. LOTREL [Concomitant]
  5. NEXIUM [Concomitant]
  6. CHANTIX [Suspect]
     Indication: SMOKING CESSATION THERAPY
     Dosage: .5MG PER DAY
     Dates: start: 20110131
  7. METHYLPREDNISOLONE [Suspect]
     Dates: start: 20110127
  8. CALCIUM [Concomitant]

REACTIONS (1)
  - LIP BLISTER [None]
